FAERS Safety Report 10240595 (Version 1)
Quarter: 2014Q2

REPORT INFORMATION
  Report Type: Spontaneous
  Country: US (occurrence: US)
  Receive Date: 20140617
  Receipt Date: 20140617
  Transmission Date: 20141212
  Serious: Yes (Hospitalization)
  Sender: FDA-Public Use
  Company Number: US-AMGEN INC.-USASP2014044559

PATIENT
  Age: 67 Year
  Sex: Male

DRUGS (2)
  1. ENBREL [Suspect]
     Indication: PSORIATIC ARTHROPATHY
     Dosage: 50 MG, 2 TIMES/WK
     Route: 065
     Dates: start: 20120815
  2. ENBREL [Suspect]
     Indication: PSORIASIS

REACTIONS (3)
  - Knee arthroplasty [Recovered/Resolved]
  - Injection site extravasation [Not Recovered/Not Resolved]
  - Injection site bruising [Recovered/Resolved]
